FAERS Safety Report 5843907-0 (Version None)
Quarter: 2008Q3

REPORT INFORMATION
  Report Type: 
  Country: None (occurrence: None)
  Receive Date: 20080808
  Receipt Date: 20080725
  Transmission Date: 20090109
  Serious: Yes (Hospitalization)
  Sender: FDA-Public Use
  Company Number: 2008BI018855

PATIENT
  Age: 47 Year
  Sex: Female
  Weight: 67 kg

DRUGS (13)
  1. TYSABRI [Suspect]
     Indication: MULTIPLE SCLEROSIS
     Dosage: 300 MG; QM; IV
     Route: 042
     Dates: start: 20070920
  2. LAMOTRIGINE (CON.) [Concomitant]
  3. PREGABALINE (CON.) [Concomitant]
  4. AMITRYPTILINE (CON.) [Concomitant]
  5. CLONAZEPAM (CON.) [Concomitant]
  6. AMANTIDINE (CON.) [Concomitant]
  7. CLONAZEPAM (CON.) [Concomitant]
  8. AMANTIDINE (CON.) [Concomitant]
  9. TRAMADOL (CON.) [Concomitant]
  10. BACLOFENE (CON.) [Concomitant]
  11. PARACETAMOL (CON.) [Concomitant]
  12. MAGNESIUM (CON.) [Concomitant]
  13. REBIF (PREV.) [Concomitant]

REACTIONS (1)
  - GRAND MAL CONVULSION [None]
